FAERS Safety Report 24192161 (Version 1)
Quarter: 2024Q3

REPORT INFORMATION
  Report Type: Spontaneous
  Country: JP (occurrence: JP)
  Receive Date: 20240809
  Receipt Date: 20240809
  Transmission Date: 20241016
  Serious: Yes (Hospitalization, Other)
  Sender: NOVARTIS
  Company Number: JP-002147023-NVSJ2024JP009446

PATIENT
  Age: 74 Year
  Sex: Female
  Weight: 34 kg

DRUGS (8)
  1. ENTRESTO [Suspect]
     Active Substance: SACUBITRIL\VALSARTAN
     Indication: Cardiac failure chronic
     Dosage: 25 MG
     Route: 048
  2. AMLODIPINE [Concomitant]
     Active Substance: AMLODIPINE BESYLATE
     Indication: Product used for unknown indication
     Dosage: 5 MG
     Route: 048
  3. AZOSEMIDE [Concomitant]
     Active Substance: AZOSEMIDE
     Indication: Product used for unknown indication
     Dosage: 30 MG
     Route: 048
  4. LEVOTHYROXINE [Concomitant]
     Active Substance: LEVOTHYROXINE\LEVOTHYROXINE SODIUM
     Indication: Product used for unknown indication
     Dosage: 75 UG
     Route: 048
  5. LINAGLIPTIN [Concomitant]
     Active Substance: LINAGLIPTIN
     Indication: Product used for unknown indication
     Dosage: 5 MG
     Route: 048
  6. WARFARIN [Concomitant]
     Active Substance: WARFARIN
     Indication: Product used for unknown indication
     Dosage: 1 MG
     Route: 048
  7. ESOMEPRAZOLE [Concomitant]
     Active Substance: ESOMEPRAZOLE
     Indication: Product used for unknown indication
     Dosage: 20 MG
     Route: 048
  8. SARPOGRELATE [Concomitant]
     Active Substance: SARPOGRELATE
     Indication: Product used for unknown indication
     Dosage: 300 MG
     Route: 048

REACTIONS (17)
  - Extremity necrosis [Unknown]
  - Mitral valve stenosis [Unknown]
  - Angina pectoris [Unknown]
  - Aortic valve stenosis [Unknown]
  - Pulmonary hypertension [Unknown]
  - Prosthetic cardiac valve regurgitation [Unknown]
  - Pulmonary artery dilatation [Unknown]
  - Pulmonary congestion [Unknown]
  - Tricuspid valve incompetence [Unknown]
  - Cardiac failure chronic [Unknown]
  - Cardiac murmur [Unknown]
  - Atrioventricular block first degree [Unknown]
  - Bundle branch block left [Unknown]
  - Pleural effusion [Unknown]
  - Left atrial enlargement [Unknown]
  - Vein disorder [Unknown]
  - Mitral valve calcification [Unknown]
